FAERS Safety Report 6860457-3 (Version None)
Quarter: 2010Q3

REPORT INFORMATION
  Report Type: 
  Country: None (occurrence: None)
  Receive Date: 20100719
  Receipt Date: 20100719
  Transmission Date: 20110219
  Serious: No
  Sender: FDA-Public Use
  Company Number: None

PATIENT
  Age: 29 Year
  Sex: Female

DRUGS (6)
  1. DEPO-PROVERA [Suspect]
     Dates: start: 20100505, end: 20100505
  2. OXYCONTIN [Concomitant]
  3. TIZANDINE [Concomitant]
  4. CONCERTA [Concomitant]
  5. AMITRIPTYLINE HYDROCHLORIDE [Concomitant]
  6. ZANEX [Concomitant]

REACTIONS (10)
  - ACTIVITIES OF DAILY LIVING IMPAIRED [None]
  - ALOPECIA [None]
  - ASTHENIA [None]
  - CONVULSION [None]
  - FOOT FRACTURE [None]
  - HOT FLUSH [None]
  - INSOMNIA [None]
  - LOCALISED OEDEMA [None]
  - THYROID CANCER [None]
  - WEIGHT DECREASED [None]
